FAERS Safety Report 5568319-9 (Version None)
Quarter: 2007Q4

REPORT INFORMATION
  Report Type: 
  Country: None (occurrence: None)
  Receive Date: 20071220
  Receipt Date: 20071211
  Transmission Date: 20080405
  Serious: Yes (Hospitalization)
  Sender: FDA-Public Use
  Company Number: FR-AVENTIS-200713850FR

PATIENT
  Age: 47 Year
  Sex: Male

DRUGS (2)
  1. RODOGYL [Suspect]
     Route: 048
     Dates: start: 20071104, end: 20071111
  2. DEPAKINE CHRONO [Concomitant]
     Indication: EPILEPSY
     Route: 048
     Dates: start: 19970101

REACTIONS (5)
  - DERMATITIS BULLOUS [None]
  - HYPERTHERMIA [None]
  - PETECHIAE [None]
  - RASH [None]
  - URTICARIA [None]
